FAERS Safety Report 14283586 (Version 1)
Quarter: 2017Q4

REPORT INFORMATION
  Report Type: Spontaneous
  Country: IT (occurrence: IT)
  Receive Date: 20171214
  Receipt Date: 20171214
  Transmission Date: 20180321
  Serious: Yes (Hospitalization)
  Sender: FDA-Public Use
  Company Number: IT-MYLANLABS-2017M1077256

PATIENT
  Age: 82 Year
  Sex: Female

DRUGS (10)
  1. BUFLOMEDIL HYDROCHLORIDE [Suspect]
     Active Substance: BUFLOMEDIL HYDROCHLORIDE
     Indication: PERIPHERAL ARTERIAL OCCLUSIVE DISEASE
     Dosage: UNK
  2. FUROSEMIDE. [Suspect]
     Active Substance: FUROSEMIDE
     Indication: PRODUCT USED FOR UNKNOWN INDICATION
     Dosage: UNK
     Route: 042
  3. SPIRONOLACTONE. [Suspect]
     Active Substance: SPIRONOLACTONE
     Indication: DIURETIC THERAPY
     Dosage: 100 MG, QD
     Route: 048
  4. TICLOPIDINE [Suspect]
     Active Substance: TICLOPIDINE
     Indication: PERIPHERAL ARTERIAL OCCLUSIVE DISEASE
     Dosage: UNK
  5. AMPICILLIN [Suspect]
     Active Substance: AMPICILLIN
     Indication: PNEUMONIA
     Dosage: 2 G, QD
  6. INDOMETACIN [Suspect]
     Active Substance: INDOMETHACIN
     Indication: ARTHRALGIA
     Dosage: UNK
  7. ISOPURAMIN [Concomitant]
     Indication: PROTEIN DEFICIENCY
     Dosage: 500 ML, UNK
     Route: 042
  8. HYDROCHLOROTHIAZIDE. [Suspect]
     Active Substance: HYDROCHLOROTHIAZIDE
     Dosage: UNK
  9. NORFLOXACIN [Concomitant]
     Active Substance: NORFLOXACIN
     Indication: ESCHERICHIA URINARY TRACT INFECTION
     Dosage: 400 MG, UNK
  10. ALBUMIN [Concomitant]
     Active Substance: ALBUMIN HUMAN
     Indication: PROTEIN DEFICIENCY
     Dosage: 50 ML, UNK
     Route: 042

REACTIONS (6)
  - Drug hypersensitivity [Unknown]
  - Oedema peripheral [Unknown]
  - Hypokalaemia [Unknown]
  - Oliguria [Unknown]
  - Tubulointerstitial nephritis [Unknown]
  - Escherichia urinary tract infection [Unknown]

NARRATIVE: CASE EVENT DATE: 19880201
